FAERS Safety Report 26077161 (Version 1)
Quarter: 2025Q4

REPORT INFORMATION
  Report Type: Spontaneous
  Country: US (occurrence: None)
  Receive Date: 20251121
  Receipt Date: 20251121
  Transmission Date: 20260118
  Serious: Yes (Other)
  Sender: FDA-CTU
  Company Number: None

PATIENT
  Sex: Male

DRUGS (11)
  1. LENALIDOMIDE [Suspect]
     Active Substance: LENALIDOMIDE
     Indication: Plasma cell myeloma
     Dosage: TAKE 1 CAPSULE BY MOUTH DAILY ON DAYS 1-21 OF EACH 28-DAY CYCLE. TAKE WHOLE WITH WATER AT THE SAME TIME EACH DAY
     Route: 048
     Dates: start: 20250829
  2. ACETAMIN TAB 500MG [Concomitant]
  3. ACYCLOVIR [Concomitant]
     Active Substance: ACYCLOVIR
  4. ASPIRIN TAB 325MG EC [Concomitant]
  5. GARB/LEVO TAB 25-100MG [Concomitant]
  6. CRESTOR [Concomitant]
     Active Substance: ROSUVASTATIN CALCIUM
  7. DEXAMETHASONE [Concomitant]
     Active Substance: DEXAMETHASONE
  8. IBUPROFEN [Concomitant]
     Active Substance: IBUPROFEN
  9. LEXAPRO TAB 10MG [Concomitant]
  10. METOPROLOL SUCCINATE [Concomitant]
     Active Substance: METOPROLOL SUCCINATE
  11. MIRALAX POW 3350 NF [Concomitant]

REACTIONS (2)
  - Coronary arterial stent insertion [None]
  - Therapy interrupted [None]
